FAERS Safety Report 13706088 (Version 2)
Quarter: 2017Q3

REPORT INFORMATION
  Report Type: Spontaneous
  Country: US (occurrence: US)
  Receive Date: 20170630
  Receipt Date: 20170810
  Transmission Date: 20171127
  Serious: Yes (Hospitalization, Other)
  Sender: FDA-Public Use
  Company Number: US-PFIZER INC-2017282246

PATIENT
  Age: 68 Year
  Sex: Female

DRUGS (3)
  1. ADVIL [Suspect]
     Active Substance: IBUPROFEN
     Indication: ARTHRALGIA
     Dosage: UNK
  2. METHOTREXATE SODIUM. [Suspect]
     Active Substance: METHOTREXATE SODIUM
     Dosage: UNK
  3. ADVIL [Suspect]
     Active Substance: IBUPROFEN
     Indication: PAIN IN EXTREMITY

REACTIONS (21)
  - Tenderness [Unknown]
  - Musculoskeletal stiffness [Unknown]
  - Joint effusion [Unknown]
  - Joint warmth [Unknown]
  - Physical examination abnormal [Unknown]
  - Red blood cell sedimentation rate increased [Unknown]
  - Cerebrovascular accident [Unknown]
  - Viral cardiomyopathy [Unknown]
  - Condition aggravated [Unknown]
  - Synovitis [Unknown]
  - Cardiac failure [Unknown]
  - Liver function test increased [Unknown]
  - Peripheral swelling [Unknown]
  - Nodal osteoarthritis [Unknown]
  - Carotid artery occlusion [Unknown]
  - Joint range of motion decreased [Unknown]
  - Blood alkaline phosphatase increased [Unknown]
  - Back pain [Unknown]
  - Joint crepitation [Unknown]
  - Joint swelling [Unknown]
  - Arthralgia [Unknown]
